FAERS Safety Report 17954116 (Version 3)
Quarter: 2020Q3

REPORT INFORMATION
  Report Type: Other
  Country: US (occurrence: US)
  Receive Date: 20200629
  Receipt Date: 20200806
  Transmission Date: 20201104
  Serious: Yes (Life-Threatening, Hospitalization)
  Sender: FDA-Public Use
  Company Number: US-ROCHE-2602817

PATIENT
  Age: 80 Year
  Sex: Male
  Weight: 67.19 kg

DRUGS (3)
  1. ALECTINIB. [Suspect]
     Active Substance: ALECTINIB
     Indication: NON-SMALL CELL LUNG CANCER
     Dosage: TAKE 3 CAPSULES BY MOUTH TWICE A DAY WITH FOOD
     Route: 048
  2. ALECTINIB. [Suspect]
     Active Substance: ALECTINIB
     Indication: BRONCHIAL CARCINOMA
     Dosage: TAKE 4 CAPSULES BY MOUTH TWICE A DAY WITH FOOD
     Route: 048
     Dates: start: 20200215
  3. ALECTINIB. [Suspect]
     Active Substance: ALECTINIB
     Dosage: TAKE 4 CAPSULES BY MOUTH TWICE A DAY WITH FOOD
     Route: 048
     Dates: start: 20200215

REACTIONS (13)
  - Dyspnoea [Recovered/Resolved]
  - Asthenia [Unknown]
  - Sleep disorder [Unknown]
  - Pulmonary oedema [Recovering/Resolving]
  - Drug ineffective [Unknown]
  - Fatigue [Unknown]
  - Malaise [Unknown]
  - Ill-defined disorder [Unknown]
  - Lethargy [Unknown]
  - Feeling abnormal [Unknown]
  - Hepatic enzyme increased [Unknown]
  - Pneumothorax [Recovered/Resolved]
  - Peripheral swelling [Recovered/Resolved]

NARRATIVE: CASE EVENT DATE: 202004
